FAERS Safety Report 12852529 (Version 3)
Quarter: 2017Q1

REPORT INFORMATION
  Report Type: Spontaneous
  Country: FR (occurrence: FR)
  Receive Date: 20161017
  Receipt Date: 20170221
  Transmission Date: 20170428
  Serious: Yes (Other)
  Sender: FDA-Public Use
  Company Number: FR-ASTELLAS-2016US040318

PATIENT
  Age: 51 Year
  Sex: Male

DRUGS (2)
  1. TACROLIMUS. [Suspect]
     Active Substance: TACROLIMUS
     Indication: RENAL TRANSPLANT
     Dosage: 0.1 MG/KG, TWICE DAILY
     Route: 065
  2. TACROLIMUS. [Suspect]
     Active Substance: TACROLIMUS
     Dosage: 0.125 MG/KG, TWICE DAILY

REACTIONS (6)
  - Neutropenia [Unknown]
  - Polyomavirus-associated nephropathy [Unknown]
  - Histology abnormal [Recovered/Resolved]
  - BK virus infection [Recovered/Resolved]
  - Donor specific antibody present [Recovered/Resolved]
  - Graft complication [Recovered/Resolved]
